FAERS Safety Report 15983052 (Version 1)
Quarter: 2019Q1

REPORT INFORMATION
  Report Type: Spontaneous
  Country: CA (occurrence: CA)
  Receive Date: 20190219
  Receipt Date: 20190219
  Transmission Date: 20190418
  Serious: Yes (Hospitalization, Other)
  Sender: FDA-Public Use
  Company Number: CA-009507513-1902CAN006784

PATIENT
  Age: 48 Year
  Sex: Female
  Weight: 106 kg

DRUGS (37)
  1. DEXAMETHASONE. [Suspect]
     Active Substance: DEXAMETHASONE
     Indication: SUPPORTIVE CARE
     Dosage: 20.0 MILLIGRAM, EVERY 1 DAY
     Route: 048
  2. ONDANSETRON [Suspect]
     Active Substance: ONDANSETRON
     Indication: SUPPORTIVE CARE
     Dosage: 8.0 MILLIGRAM
     Route: 048
  3. TYLENOL WITH CODEINE [Suspect]
     Active Substance: ACETAMINOPHEN\CODEINE PHOSPHATE
     Indication: TARDIVE DYSKINESIA
     Route: 065
  4. BETAMETHASONE. [Suspect]
     Active Substance: BETAMETHASONE
     Indication: TARDIVE DYSKINESIA
     Dosage: 2 EVERY 1 DAY
     Route: 065
  5. ACETAMINOPHEN AND CODEINE [Suspect]
     Active Substance: ACETAMINOPHEN\CODEINE PHOSPHATE
     Indication: TARDIVE DYSKINESIA
     Dosage: 30.0 MILLIGRAM, 6 EVERY 1 DAY
     Route: 065
  6. DOXORUBICIN HYDROCHLORIDE. [Suspect]
     Active Substance: DOXORUBICIN HYDROCHLORIDE
     Dosage: 136 MILLIGRAM, CYCLICAL
     Route: 042
  7. FILGRASTIM [Suspect]
     Active Substance: FILGRASTIM
     Indication: SUPPORTIVE CARE
     Dosage: 480.0 MILLIGRAM, 1 EVERY 1 DAY
     Route: 065
  8. LEVOFLOXACIN. [Suspect]
     Active Substance: LEVOFLOXACIN
     Indication: TARDIVE DYSKINESIA
     Dosage: 500.0 MILLIGRAM, 1 EVERY 1 DAY
     Route: 048
  9. METOCLOPRAMIDE. [Suspect]
     Active Substance: METOCLOPRAMIDE
     Indication: TARDIVE DYSKINESIA
     Dosage: 10.0 MILLIGRAM, 4 EVERY 1 DAY
     Route: 048
  10. ENOXAPARIN SODIUM. [Suspect]
     Active Substance: ENOXAPARIN SODIUM
     Indication: TARDIVE DYSKINESIA
     Dosage: 150.0 MILLIGRAM, 1 EVERY 1 DAY
     Route: 058
  11. PACLITAXEL. [Suspect]
     Active Substance: PACLITAXEL
     Dosage: 393.0 MILLIGRAM
     Route: 042
  12. ACETAMINOPHEN AND CODEINE [Suspect]
     Active Substance: ACETAMINOPHEN\CODEINE PHOSPHATE
     Dosage: 30.0 MILLIGRAM, 1 EVERY 4 HOURS
     Route: 065
  13. DOXORUBICIN HYDROCHLORIDE. [Suspect]
     Active Substance: DOXORUBICIN HYDROCHLORIDE
     Dosage: 136 MILLIGRAM, EVERY 4 HOURS
     Route: 042
  14. LORAZEPAM. [Suspect]
     Active Substance: LORAZEPAM
     Indication: TARDIVE DYSKINESIA
     Dosage: 0.5 MILLIGRAM, 2 EVERY 1 DAY
     Route: 048
  15. PACLITAXEL. [Suspect]
     Active Substance: PACLITAXEL
     Indication: BREAST CANCER
     Dosage: 243.0 MILLIGRAM
     Route: 042
  16. ZOFRAN [Suspect]
     Active Substance: ONDANSETRON HYDROCHLORIDE
     Indication: SUPPORTIVE CARE
     Dosage: 8.0 MILLIGRAM
     Route: 048
  17. EMEND (FOSAPREPITANT DIMEGLUMINE) [Suspect]
     Active Substance: FOSAPREPITANT DIMEGLUMINE
     Indication: SUPPORTIVE CARE
     Dosage: 80.0 MILLIGRAM, 1 EVERY DAY
     Route: 048
  18. PACLITAXEL. [Suspect]
     Active Substance: PACLITAXEL
     Dosage: 303.0 MILLIGRAM
     Route: 042
  19. PROCYTOX [Suspect]
     Active Substance: CYCLOPHOSPHAMIDE
     Indication: TARDIVE DYSKINESIA
     Dosage: 1360.0 MILLIGRAM, 1 EVERY 2 WEEKS (EVERY 14 DAYS)
     Route: 042
  20. TRASTUZUMAB. [Suspect]
     Active Substance: TRASTUZUMAB
     Indication: TARDIVE DYSKINESIA
     Dosage: 626.0 MILLIGRAM
     Route: 065
  21. EMEND [Suspect]
     Active Substance: APREPITANT
     Indication: SUPPORTIVE CARE
     Dosage: 80.0 MILLIGRAM, 1 EVERY 1 DAY
     Route: 048
  22. EMEND [Suspect]
     Active Substance: APREPITANT
     Dosage: 125.0 MILLIGRAM. 1 EVERY 1 DAY
     Route: 048
  23. APREPITANT. [Suspect]
     Active Substance: APREPITANT
     Dosage: 80.0 MILLIGRAM. 1 EVERY 1 DAY
     Route: 048
  24. BETAMETHASONE. [Suspect]
     Active Substance: BETAMETHASONE
     Dosage: 1 EVERY 12 HOURS
     Route: 048
  25. LORAZEPAM. [Suspect]
     Active Substance: LORAZEPAM
     Dosage: 0.5 MILLIGRAM, 1 EVERY 12 HOURS
     Route: 048
  26. RANITIDINE. [Suspect]
     Active Substance: RANITIDINE
     Dosage: 150.0 MILLIGRAM, 2 EVERY 1 DAY
     Route: 048
  27. TRASTUZUMAB. [Suspect]
     Active Substance: TRASTUZUMAB
     Dosage: 866.0 MILLIGRAM
     Route: 065
  28. TYLENOL WITH CODEINE #3 (ACETAMINOPHEN (+) CAFFEINE (+) CODEINE PHOSPH [Suspect]
     Active Substance: ACETAMINOPHEN\CAFFEINE\CODEINE PHOSPHATE
     Indication: TARDIVE DYSKINESIA
     Dosage: 30 MILLIGRAM, 6 EVERY 1 DAY
     Route: 065
  29. EMEND (FOSAPREPITANT DIMEGLUMINE) [Suspect]
     Active Substance: FOSAPREPITANT DIMEGLUMINE
     Dosage: 125 MILLIGRAM
     Route: 048
  30. FILGRASTIM [Suspect]
     Active Substance: FILGRASTIM
     Dosage: 480 MICROGRAM, 1 EVERY 1 DAY
     Route: 065
  31. PEGFILGRASTIM [Suspect]
     Active Substance: PEGFILGRASTIM
     Indication: SUPPORTIVE CARE
     Dosage: 6.0 MILLIGRAM
     Route: 058
  32. RANITIDINE. [Suspect]
     Active Substance: RANITIDINE
     Dosage: 150.0 MILLIGRAM, 1 EVERY 12 HOURS
     Route: 048
  33. APREPITANT. [Suspect]
     Active Substance: APREPITANT
     Indication: SUPPORTIVE CARE
     Dosage: 125.0 MILLIGRAM, 1 EVERY 1 DAY
     Route: 048
  34. DOXORUBICIN HYDROCHLORIDE. [Suspect]
     Active Substance: DOXORUBICIN HYDROCHLORIDE
     Indication: BREAST CANCER
     Dosage: 136.0 MILLIGRAM,1 EVERY 14 DAYS /EVERY 2 WEEKS
     Route: 042
  35. METOCLOPRAMIDE. [Suspect]
     Active Substance: METOCLOPRAMIDE
     Dosage: 10.0 MILLIGRAM, 1 EVERY 6 HOURS
     Route: 048
  36. PROCYTOX [Suspect]
     Active Substance: CYCLOPHOSPHAMIDE
     Indication: BREAST CANCER
     Dosage: 1360.0 MILLIGRAM CYCLICAL
     Route: 042
  37. RANITIDINE. [Suspect]
     Active Substance: RANITIDINE
     Indication: TARDIVE DYSKINESIA
     Dosage: 150.0 MILLIGRAM, 2 EVERY 1 DAY
     Route: 042

REACTIONS (11)
  - Cough [Recovered/Resolved]
  - Off label use [Unknown]
  - Computerised tomogram thorax abnormal [Recovered/Resolved]
  - Dyspnoea [Recovered/Resolved]
  - Rash [Unknown]
  - Atelectasis [Unknown]
  - Gastrointestinal disorder [Recovered/Resolved]
  - Pyrexia [Recovered/Resolved]
  - Hypoxia [Recovered/Resolved]
  - Fatigue [Recovered/Resolved]
  - Nausea [Recovered/Resolved]
